FAERS Safety Report 19006299 (Version 1)
Quarter: 2021Q1

REPORT INFORMATION
  Report Type: Spontaneous
  Country: PL (occurrence: PL)
  Receive Date: 20210315
  Receipt Date: 20210315
  Transmission Date: 20210420
  Serious: Yes (Hospitalization, Other)
  Sender: FDA-Public Use
  Company Number: PL-AUROBINDO-AUR-APL-2021-009833

PATIENT
  Age: 65 Year
  Sex: Female
  Weight: 85 kg

DRUGS (9)
  1. TORASEMIDE [Suspect]
     Active Substance: TORSEMIDE
     Indication: PRODUCT USED FOR UNKNOWN INDICATION
     Dosage: 40 MILLIGRAM, ONCE A DAY (10 MG/50 ML)
     Route: 042
  2. BISOPROLOL [Suspect]
     Active Substance: BISOPROLOL
     Dosage: 2.5 MILLIGRAM, ONCE A DAY
     Route: 065
  3. SPIRONOLACTONE. [Concomitant]
     Active Substance: SPIRONOLACTONE
     Indication: PRODUCT USED FOR UNKNOWN INDICATION
     Dosage: 12.5 GRAM, ONCE A DAY
     Route: 065
  4. TORASEMIDE [Suspect]
     Active Substance: TORSEMIDE
     Dosage: 5 MILLIGRAM, ONCE A DAY
     Route: 048
  5. TORASEMIDE [Suspect]
     Active Substance: TORSEMIDE
     Dosage: 2.5 MILLIGRAM, ONCE A DAY
     Route: 065
  6. SACUBITRIL;VALSARTAN [Suspect]
     Active Substance: SACUBITRIL\VALSARTAN
     Indication: PRODUCT USED FOR UNKNOWN INDICATION
     Dosage: 98/102 MG TWO TIMES A DAY
     Route: 065
  7. BISOPROLOL [Suspect]
     Active Substance: BISOPROLOL
     Indication: PRODUCT USED FOR UNKNOWN INDICATION
     Dosage: 1.25 MILLIGRAM, ONCE A DAY
     Route: 065
  8. SACUBITRIL;VALSARTAN [Suspect]
     Active Substance: SACUBITRIL\VALSARTAN
     Dosage: 49/51 MG TWO TIMES A DAY
     Route: 065
  9. PERINDOPRIL [Concomitant]
     Active Substance: PERINDOPRIL
     Indication: PRODUCT USED FOR UNKNOWN INDICATION
     Dosage: 10 MILLIGRAM, ONCE A DAY
     Route: 065

REACTIONS (30)
  - Abnormal precordial movement [Unknown]
  - Blood potassium abnormal [Unknown]
  - Dizziness [Unknown]
  - Asthenia [Recovering/Resolving]
  - Headache [Unknown]
  - Cough [Recovered/Resolved]
  - Dyspnoea at rest [Unknown]
  - Bendopnoea [Recovered/Resolved]
  - Exercise tolerance decreased [Recovering/Resolving]
  - Oedema peripheral [Recovered/Resolved]
  - N-terminal prohormone brain natriuretic peptide abnormal [Recovering/Resolving]
  - Feeling of relaxation [Unknown]
  - Sinus rhythm [Recovering/Resolving]
  - Trepopnoea [Unknown]
  - Renal impairment [Unknown]
  - Cardiac failure chronic [Recovering/Resolving]
  - Glomerular filtration rate abnormal [Unknown]
  - Cardiac murmur [Unknown]
  - Palpitations [Recovered/Resolved]
  - Nocturia [Recovered/Resolved]
  - Mitral valve incompetence [Unknown]
  - Tachypnoea [Recovered/Resolved]
  - Peripheral swelling [Recovered/Resolved]
  - Extrasystoles [Recovered/Resolved]
  - Blood creatinine abnormal [Unknown]
  - General physical health deterioration [Recovering/Resolving]
  - Dyspnoea paroxysmal nocturnal [Recovered/Resolved]
  - Fatigue [Recovering/Resolving]
  - Heart sounds abnormal [Recovered/Resolved]
  - Weight increased [Recovered/Resolved]
